FAERS Safety Report 23301358 (Version 3)
Quarter: 2024Q2

REPORT INFORMATION
  Report Type: Other
  Country: US (occurrence: None)
  Receive Date: 20231215
  Receipt Date: 20240606
  Transmission Date: 20240715
  Serious: Yes (Hospitalization)
  Sender: FDA-Public Use
  Company Number: US-ROCHE-3454359

PATIENT
  Age: 35 Year
  Sex: Female
  Weight: 69.916 kg

DRUGS (10)
  1. RITUXAN [Suspect]
     Active Substance: RITUXIMAB
     Indication: Rheumatoid arthritis
     Route: 042
  2. RITUXAN [Suspect]
     Active Substance: RITUXIMAB
     Dosage: AND EVERY 6 MONTH
     Route: 042
     Dates: start: 2022, end: 202303
  3. ACTEMRA [Suspect]
     Active Substance: TOCILIZUMAB
     Indication: Rheumatoid arthritis
     Route: 058
     Dates: start: 2022, end: 2022
  4. PREDNISONE [Suspect]
     Active Substance: PREDNISONE
     Indication: Rheumatoid arthritis
     Route: 065
  5. ATIVAN [Concomitant]
     Active Substance: LORAZEPAM
  6. ZOFRAN [Concomitant]
     Active Substance: ONDANSETRON HYDROCHLORIDE
  7. PROMETHAZINE [Concomitant]
     Active Substance: PROMETHAZINE HYDROCHLORIDE
  8. METHOTREXATE [Concomitant]
     Active Substance: METHOTREXATE
  9. BOTOX [Concomitant]
     Active Substance: ONABOTULINUMTOXINA
  10. FOLIC ACID [Concomitant]
     Active Substance: FOLIC ACID

REACTIONS (26)
  - Weight decreased [Unknown]
  - Blood pressure increased [Unknown]
  - Epistaxis [Recovered/Resolved]
  - Vomiting [Unknown]
  - Tremor [Recovered/Resolved]
  - Tachycardia [Unknown]
  - Torticollis [Not Recovered/Not Resolved]
  - Thyroid cyst [Unknown]
  - Pituitary cyst [Unknown]
  - Retinal vascular disorder [Unknown]
  - Headache [Recovered/Resolved]
  - Arthritis [Not Recovered/Not Resolved]
  - Tooth fracture [Recovered/Resolved]
  - Urinary retention [Recovered/Resolved]
  - Eye infection [Recovered/Resolved]
  - Joint space narrowing [Not Recovered/Not Resolved]
  - Cardiac disorder [Not Recovered/Not Resolved]
  - Arthropathy [Recovered/Resolved]
  - Fall [Unknown]
  - Dehydration [Recovered/Resolved]
  - Fluid retention [Recovered/Resolved]
  - Cardiac disorder [Not Recovered/Not Resolved]
  - Ill-defined disorder [Not Recovered/Not Resolved]
  - Arthropathy [Not Recovered/Not Resolved]
  - Dental caries [Recovered/Resolved]
  - Off label use [Unknown]

NARRATIVE: CASE EVENT DATE: 20220101
